FAERS Safety Report 24987478 (Version 1)
Quarter: 2025Q1

REPORT INFORMATION
  Report Type: Spontaneous
  Country: CH (occurrence: CH)
  Receive Date: 20250219
  Receipt Date: 20250219
  Transmission Date: 20250408
  Serious: Yes (Hospitalization, Other)
  Sender: PFIZER
  Company Number: None

PATIENT
  Age: 70 Year
  Sex: Female
  Weight: 42 kg

DRUGS (19)
  1. BOSULIF [Suspect]
     Active Substance: BOSUTINIB MONOHYDRATE
     Indication: Chronic myeloid leukaemia
     Dosage: 200 MG, 1X/DAY
     Route: 048
     Dates: start: 202408, end: 20241127
  2. IMATINIB [Suspect]
     Active Substance: IMATINIB
     Indication: Chronic myeloid leukaemia
     Dosage: 400 MG, 1X/DAY
     Route: 048
     Dates: start: 20231103, end: 202405
  3. IMATINIB [Suspect]
     Active Substance: IMATINIB
     Dosage: 200 MG, 1X/DAY
     Route: 048
     Dates: start: 202405, end: 202408
  4. VITAMIN B1 [Concomitant]
     Active Substance: THIAMINE HYDROCHLORIDE
     Dosage: 300 MG, 1X/DAY
     Route: 048
  5. ANORO ELLIPTA [Concomitant]
     Active Substance: UMECLIDINIUM BROMIDE\VILANTEROL TRIFENATATE
     Dosage: 1 DF, 1X/DAY
     Route: 055
  6. VALSARTAN AMLO SPIRIG HC [Concomitant]
     Dosage: 1 DF, 1X/DAY, 1-0-0-0
     Route: 048
  7. IBANDRONAT SANDOZ [Concomitant]
     Route: 042
  8. MAGNESIUM DIASPORAL [MAGNESIUM CITRATE] [Concomitant]
     Dosage: 300 MG, 1X/DAY
     Route: 048
  9. TOUJEO [Concomitant]
     Active Substance: INSULIN GLARGINE
     Dosage: 7 IU, 1X/DAY, 7-0-0-0
     Route: 058
  10. ATORVASTATIN CALCIUM [Concomitant]
     Active Substance: ATORVASTATIN CALCIUM
     Dosage: 20 MG, 1X/DAY, 1-0-0-0
     Route: 048
  11. PANTOPRAZOLE SODIUM [Concomitant]
     Active Substance: PANTOPRAZOLE SODIUM
     Dosage: 40 MG, 1X/DAY
     Route: 048
  12. XARELTO [Concomitant]
     Active Substance: RIVAROXABAN
     Dosage: 2.5 MG, 2X/DAY, 1-0-1-0
     Route: 048
     Dates: start: 20241020
  13. ASPIRIN [Concomitant]
     Active Substance: ASPIRIN
     Dosage: 100 MG, 1X/DAY
     Route: 048
  14. CHOLECALCIFEROL [Concomitant]
     Active Substance: CHOLECALCIFEROL
     Dosage: 10 DROP, 1X/DAY
     Route: 048
  15. CREON [Concomitant]
     Active Substance: PANCRELIPASE AMYLASE\PANCRELIPASE LIPASE\PANCRELIPASE PROTEASE
     Dosage: 25000 UIU, 1 DF, 3X/DAY, 1-1-1-0
     Route: 048
  16. CREON [Concomitant]
     Active Substance: PANCRELIPASE AMYLASE\PANCRELIPASE LIPASE\PANCRELIPASE PROTEASE
     Route: 048
  17. IRON POLYMALTOSE [Concomitant]
     Active Substance: IRON POLYMALTOSE
     Dosage: 100 MG, 1X/DAY, 1-0-0-0
     Route: 048
  18. CALCIUM\CHOLECALCIFEROL [Concomitant]
     Active Substance: CALCIUM\CHOLECALCIFEROL
     Dosage: 1 DF, 1X/DAY
     Route: 048
  19. NOVORAPID [Concomitant]
     Active Substance: INSULIN ASPART
     Route: 058

REACTIONS (3)
  - Drug-induced liver injury [Recovering/Resolving]
  - Influenza [Unknown]
  - Cholestasis [Recovering/Resolving]

NARRATIVE: CASE EVENT DATE: 20241125
